FAERS Safety Report 12094268 (Version 4)
Quarter: 2016Q2

REPORT INFORMATION
  Report Type: Spontaneous
  Country: US (occurrence: US)
  Receive Date: 20160219
  Receipt Date: 20160421
  Transmission Date: 20160815
  Serious: Yes (Other)
  Sender: FDA-Public Use
  Company Number: US-JNJFOC-20160212555

PATIENT
  Sex: Female
  Weight: 70.31 kg

DRUGS (9)
  1. DURAGESIC [Suspect]
     Active Substance: FENTANYL
     Indication: RHEUMATOID ARTHRITIS
     Route: 062
  2. DURAGESIC [Suspect]
     Active Substance: FENTANYL
     Indication: RHEUMATOID ARTHRITIS
     Route: 062
     Dates: start: 2001, end: 2001
  3. HUMIRA [Concomitant]
     Active Substance: ADALIMUMAB
     Indication: AUTOIMMUNE DISORDER
     Route: 065
  4. DURAGESIC [Suspect]
     Active Substance: FENTANYL
     Indication: RHEUMATOID ARTHRITIS
     Route: 062
     Dates: start: 2001, end: 2001
  5. DURAGESIC [Suspect]
     Active Substance: FENTANYL
     Indication: FIBROMYALGIA
     Route: 062
     Dates: start: 2001, end: 2001
  6. DURAGESIC [Suspect]
     Active Substance: FENTANYL
     Indication: FIBROMYALGIA
     Route: 062
     Dates: start: 2001, end: 2001
  7. DURAGESIC [Suspect]
     Active Substance: FENTANYL
     Indication: FIBROMYALGIA
     Route: 062
  8. DURAGESIC [Suspect]
     Active Substance: FENTANYL
     Indication: FIBROMYALGIA
     Route: 062
     Dates: start: 2001
  9. DURAGESIC [Suspect]
     Active Substance: FENTANYL
     Indication: RHEUMATOID ARTHRITIS
     Route: 062
     Dates: start: 2001

REACTIONS (6)
  - Disability [Unknown]
  - Stereotypy [Unknown]
  - Dependence [Unknown]
  - Pain [Unknown]
  - Adverse drug reaction [Unknown]
  - Drug effect decreased [Unknown]
